FAERS Safety Report 9203772 (Version 1)
Quarter: 2013Q1

REPORT INFORMATION
  Report Type: Spontaneous
  Country: US (occurrence: None)
  Receive Date: 20120709
  Receipt Date: 20120709
  Transmission Date: 20140127
  Serious: No
  Sender: FDA-Public Use
  Company Number: 2012HGS-003670

PATIENT
  Age: 44 Year
  Sex: Female
  Weight: 102.51 kg

DRUGS (4)
  1. BENLYSTA [Suspect]
     Indication: SYSTEMIC LUPUS ERYTHEMATOSUS
     Dosage: 1 IN 28 D
     Route: 041
     Dates: start: 20120101, end: 20120115
  2. PREDNISONE (PREDNISONE) (PREDNISONE) [Concomitant]
  3. LORTAB (VICODIN) (PARACETAMOL, HYDROCODONE BITARTRATE) [Concomitant]
  4. ESTRACE (ESTRADIOL) (ESTRADIOL) [Concomitant]

REACTIONS (2)
  - Arthralgia [None]
  - Local swelling [None]
